FAERS Safety Report 15227812 (Version 1)
Quarter: 2018Q3

REPORT INFORMATION
  Report Type: Spontaneous
  Country: FR (occurrence: FR)
  Receive Date: 20180801
  Receipt Date: 20180801
  Transmission Date: 20181010
  Serious: Yes (Hospitalization)
  Sender: FDA-Public Use
  Company Number: FR-PFIZER INC-2018300674

PATIENT
  Age: 60 Year
  Sex: Male
  Weight: 66 kg

DRUGS (13)
  1. AVASTIN [Suspect]
     Active Substance: BEVACIZUMAB
     Indication: RECTAL CANCER METASTATIC
     Dosage: 330 MG, UNK
     Route: 042
     Dates: start: 20180306, end: 20180518
  2. MOVICOL [Concomitant]
     Active Substance: POLYETHYLENE GLYCOL 3350\POTASSIUM CHLORIDE\SODIUM BICARBONATE\SODIUM CHLORIDE
     Dosage: UNK
  3. FOLINATE DE CALCIUM SANDOZ [Concomitant]
     Active Substance: LEUCOVORIN CALCIUM
     Indication: PREMEDICATION
     Dosage: 708 MG, UNK
     Route: 042
  4. IRINOTECAN HCL [Suspect]
     Active Substance: IRINOTECAN HYDROCHLORIDE
     Indication: RECTAL CANCER METASTATIC
     Dosage: 320 MG, UNK
     Route: 042
     Dates: start: 20180306, end: 20180518
  5. ONDANSETRON ACCORD [Concomitant]
     Active Substance: ONDANSETRON
     Indication: PREMEDICATION
     Dosage: 8 MG, UNK
     Route: 042
  6. INEXIUM /01479302/ [Concomitant]
     Active Substance: ESOMEPRAZOLE MAGNESIUM
     Dosage: UNK
  7. MOTILIUM [Concomitant]
     Active Substance: DOMPERIDONE
     Dosage: UNK
  8. FLUOROURACILE ACCORD [Suspect]
     Active Substance: FLUOROURACIL
     Indication: RECTAL CANCER METASTATIC
     Dosage: 5000 MG, UNK
     Route: 042
     Dates: start: 20180306, end: 20180518
  9. DOLIPRANE [Concomitant]
     Active Substance: ACETAMINOPHEN
     Dosage: UNK
  10. SOLUPRED /00016201/ [Concomitant]
     Active Substance: PREDNISOLONE
     Dosage: UNK
  11. EMEND [Concomitant]
     Active Substance: APREPITANT
     Dosage: UNK
  12. METHYLPREDNISOLONE MYLAN /00049602/ [Concomitant]
     Active Substance: METHYLPREDNISOLONE SODIUM SUCCINATE
     Indication: PREMEDICATION
     Dosage: 66 MG, UNK
     Route: 042
  13. ATROPINE AGUETTANT [Concomitant]
     Active Substance: ATROPINE
     Indication: PREMEDICATION
     Dosage: 0.25 MG, UNK
     Route: 042

REACTIONS (2)
  - Fistula [Recovered/Resolved]
  - Abscess [Recovered/Resolved]

NARRATIVE: CASE EVENT DATE: 20180609
